FAERS Safety Report 5207218-9 (Version None)
Quarter: 2007Q1

REPORT INFORMATION
  Report Type: 
  Country: None (occurrence: None)
  Receive Date: 20070112
  Receipt Date: 20070109
  Transmission Date: 20070707
  Serious: Yes (Other)
  Sender: FDA-Public Use
  Company Number: GB-GLAXOSMITHKLINE-B0453794A

PATIENT
  Age: 21 Year
  Sex: Female

DRUGS (4)
  1. ONDANSETRON [Suspect]
     Indication: HYPEREMESIS GRAVIDARUM
     Route: 042
     Dates: start: 20061107, end: 20061108
  2. METOCLOPRAMIDE [Concomitant]
     Indication: NAUSEA
     Route: 048
     Dates: start: 20061023, end: 20061107
  3. PROCHLORPERAZINE [Concomitant]
  4. THIAMINE [Concomitant]

REACTIONS (4)
  - CHILLS [None]
  - MUSCLE RIGIDITY [None]
  - MUSCULOSKELETAL STIFFNESS [None]
  - TACHYCARDIA [None]
